FAERS Safety Report 21394859 (Version 1)
Quarter: 2022Q3

REPORT INFORMATION
  Report Type: Spontaneous
  Country: JP (occurrence: JP)
  Receive Date: 20220930
  Receipt Date: 20220930
  Transmission Date: 20221027
  Serious: Yes (Other)
  Sender: FDA-Public Use
  Company Number: JP-MSNLABS-2022MSNLIT01146

PATIENT

DRUGS (10)
  1. DROXIDOPA [Suspect]
     Active Substance: DROXIDOPA
     Indication: Syncope
     Dosage: 300 MG/D
     Route: 065
  2. DROXIDOPA [Suspect]
     Active Substance: DROXIDOPA
     Indication: Blood pressure management
     Dosage: 600 MG/D
     Route: 065
  3. FLUDROCORTISONE [Suspect]
     Active Substance: FLUDROCORTISONE
     Indication: Syncope
     Dosage: 0.1 MG/D
     Route: 065
  4. DISOPYRAMIDE [Concomitant]
     Active Substance: DISOPYRAMIDE
     Dosage: 300 MG/D
     Route: 048
  5. DISOPYRAMIDE [Concomitant]
     Active Substance: DISOPYRAMIDE
  6. MIDODRINE [Concomitant]
     Active Substance: MIDODRINE
     Indication: Orthostatic hypotension
     Dosage: 4 MG/D
     Route: 065
  7. MIDODRINE [Concomitant]
     Active Substance: MIDODRINE
     Dosage: 8 MG/D
     Route: 065
  8. AZOSEMIDE [Concomitant]
     Active Substance: AZOSEMIDE
     Indication: Cardiac failure
     Dosage: 15 MG/D
     Route: 065
  9. SPIRONOLACTONE [Concomitant]
     Active Substance: SPIRONOLACTONE
     Indication: Cardiac failure
     Dosage: 25 MG/D
     Route: 065
  10. ENALAPRIL [Concomitant]
     Active Substance: ENALAPRIL
     Indication: Cardiac failure
     Dosage: 2.5 MG/D
     Route: 065

REACTIONS (2)
  - Drug ineffective [Unknown]
  - Syncope [Unknown]
